FAERS Safety Report 6283461-5 (Version None)
Quarter: 2009Q3

REPORT INFORMATION
  Report Type: 
  Country: None (occurrence: None)
  Receive Date: 20090724
  Receipt Date: 20090403
  Transmission Date: 20100115
  Serious: No
  Sender: FDA-Public Use
  Company Number: US-ALEXION-A200900284

PATIENT
  Sex: Female

DRUGS (17)
  1. SOLIRIS [Suspect]
     Indication: PAROXYSMAL NOCTURNAL HAEMOGLOBINURIA
     Dosage: 600 MG, QW
     Route: 042
     Dates: start: 20090402
  2. COUMADIN [Concomitant]
     Dosage: 5 MG, QD
     Route: 048
  3. ZOCOR [Concomitant]
     Dosage: 20 MG, QD
     Route: 048
  4. AMIODARONE [Concomitant]
     Indication: CARDIAC DISORDER
     Dosage: 200 MG, TID
     Route: 048
  5. K-DUR [Concomitant]
     Indication: BLOOD POTASSIUM DECREASED
     Dosage: 20 MEQ, QD
     Route: 048
  6. LASIX [Concomitant]
     Indication: CARDIAC DISORDER
     Dosage: 40 MG, BID
     Route: 048
  7. NEXIUM [Concomitant]
     Dosage: 40 MG, QD
     Route: 048
  8. ALLOPURINOL [Concomitant]
     Indication: GOUT
     Dosage: 300 MG, QD
     Route: 048
  9. CYMBALTA [Concomitant]
     Dosage: 100 MG, BID
     Route: 048
  10. SODIUM BICARBONATE [Concomitant]
     Dosage: 650 MEQ, BID
     Route: 048
  11. XANAX [Concomitant]
     Dosage: 0.5 MG, PRN
     Route: 048
  12. VALTREX [Concomitant]
     Dosage: 1 G, TID, Q8H
     Route: 048
  13. COLACE [Concomitant]
     Dosage: 100 MG, BID
     Route: 048
  14. GLIPIZIDE [Concomitant]
     Dosage: 10 MG, QD
     Route: 048
  15. LORATADINE [Concomitant]
     Dosage: 10 MG, QD
     Route: 048
  16. LISINOPRIL [Concomitant]
     Dosage: 5 MG, QD
     Route: 048
  17. PROTONIX                           /01263201/ [Concomitant]
     Dosage: 40 MG, QD
     Route: 048

REACTIONS (1)
  - NASOPHARYNGITIS [None]
